FAERS Safety Report 5329398-7 (Version None)
Quarter: 2007Q2

REPORT INFORMATION
  Report Type: 
  Country: None (occurrence: None)
  Receive Date: 20070518
  Receipt Date: 20070510
  Transmission Date: 20071010
  Serious: Yes (Death)
  Sender: FDA-Public Use
  Company Number: CZ-ABBOTT-07P-217-0367928-00

PATIENT
  Sex: Male
  Weight: 79 kg

DRUGS (8)
  1. KALETRA [Suspect]
     Indication: HIV INFECTION CDC CATEGORY C3
     Route: 048
     Dates: start: 20060620, end: 20070130
  2. EMTRIVA [Concomitant]
     Indication: HIV INFECTION CDC CATEGORY C3
     Route: 048
     Dates: start: 20060620, end: 20070130
  3. VIERAD [Concomitant]
     Indication: HIV INFECTION CDC CATEGORY C3
     Route: 048
     Dates: start: 20060620, end: 20070130
  4. MEGESTROL ACETATE [Concomitant]
     Indication: THROMBOCYTOPENIA
     Route: 048
     Dates: start: 20060509, end: 20070130
  5. CLARITHROMYCIN [Concomitant]
     Indication: PROPHYLAXIS
     Route: 048
     Dates: start: 20060509, end: 20070130
  6. ISOSORBIDE MONONITRATE [Concomitant]
     Indication: MYOCARDIAL ISCHAEMIA
     Route: 048
     Dates: start: 20060105, end: 20070130
  7. ACIDUM FOLICUM [Concomitant]
     Indication: POLYNEUROPATHY
     Route: 048
     Dates: start: 20011101, end: 20070130
  8. PYRIDOXINE HYDROCHLORIDE [Concomitant]
     Indication: POLYNEUROPATHY
     Route: 048
     Dates: start: 20011101, end: 20070130

REACTIONS (4)
  - ARTERIOSCLEROSIS [None]
  - CARDIAC FAILURE [None]
  - MUSCLE INJURY [None]
  - PULMONARY OEDEMA [None]
